FAERS Safety Report 9072426 (Version 1)
Quarter: 2013Q1

REPORT INFORMATION
  Report Type: Spontaneous
  Country: DE (occurrence: DE)
  Receive Date: 20130207
  Receipt Date: 20130207
  Transmission Date: 20140127
  Serious: Yes (Other)
  Sender: FDA-Public Use
  Company Number: DE-PFIZER INC-2013046185

PATIENT
  Age: 65 Year
  Sex: Male
  Weight: 81 kg

DRUGS (5)
  1. TREVILOR RETARD [Suspect]
     Indication: DEPRESSION
     Dosage: 225 MG, UNK
     Route: 048
     Dates: start: 20120808, end: 20120810
  2. METOPROLOL [Concomitant]
     Indication: HYPERTENSION
     Dosage: 47.5 MG, UNK
     Route: 048
     Dates: start: 20120628
  3. HCT/ LOSARTAN [Concomitant]
     Indication: HYPERTENSION
     Dosage: 50MG/12.5 MG
     Route: 048
     Dates: start: 20120628
  4. SEROQUEL PROLONG [Concomitant]
     Indication: THERAPEUTIC PROCEDURE
     Dosage: 300 MG, UNK
     Route: 048
     Dates: start: 20120806
  5. TAVOR [Concomitant]
     Indication: ANXIOLYTIC THERAPY
     Dosage: 0.5 MG, UNK
     Route: 048

REACTIONS (1)
  - Sudden hearing loss [Not Recovered/Not Resolved]
